FAERS Safety Report 10953422 (Version 2)
Quarter: 2015Q2

REPORT INFORMATION
  Report Type: Spontaneous
  Country: US (occurrence: US)
  Receive Date: 20150325
  Receipt Date: 20150527
  Transmission Date: 20150821
  Serious: Yes (Hospitalization, Other)
  Sender: FDA-Public Use
  Company Number: US-JNJFOC-20141111753

PATIENT

DRUGS (3)
  1. SIMEPREVIR [Suspect]
     Active Substance: SIMEPREVIR
     Indication: HEPATITIS C
     Route: 048
  2. SOFOSBUVIR [Suspect]
     Active Substance: SOFOSBUVIR
     Indication: HEPATITIS C
     Route: 065
  3. RIBAVIRINE [Suspect]
     Active Substance: RIBAVIRIN
     Indication: HEPATITIS C
     Route: 065

REACTIONS (18)
  - Amylase increased [Unknown]
  - Nausea [Unknown]
  - Haemoglobin decreased [Unknown]
  - Lipase increased [Unknown]
  - Diarrhoea [Unknown]
  - Anaemia [Unknown]
  - Hepatitis C [Unknown]
  - Pruritus [Unknown]
  - Fatigue [Unknown]
  - Blood creatinine increased [Unknown]
  - Off label use [Unknown]
  - Dyspnoea [Unknown]
  - Rash [Unknown]
  - Hyperbilirubinaemia [Unknown]
  - Headache [Unknown]
  - Insomnia [Unknown]
  - Fluid retention [Unknown]
  - Photosensitivity reaction [Unknown]
